FAERS Safety Report 6095956-8 (Version None)
Quarter: 2009Q1

REPORT INFORMATION
  Report Type: 
  Country: None (occurrence: None)
  Receive Date: 20090227
  Receipt Date: 20081215
  Transmission Date: 20090719
  Serious: No
  Sender: FDA-Public Use
  Company Number: A0739110A

PATIENT
  Age: 34 Year
  Sex: Female
  Weight: 52.3 kg

DRUGS (2)
  1. LAMICTAL [Suspect]
     Indication: BIPOLAR DISORDER
     Dosage: 250MG PER DAY
     Route: 048
     Dates: start: 20070901
  2. NO CONCURRENT MEDICATION [Concomitant]

REACTIONS (8)
  - DERMATITIS CONTACT [None]
  - ESCHERICHIA INFECTION [None]
  - EYE SWELLING [None]
  - MALAISE [None]
  - PRURITUS [None]
  - RASH PAPULAR [None]
  - RASH PRURITIC [None]
  - SKIN BURNING SENSATION [None]
